FAERS Safety Report 4477191-X (Version None)
Quarter: 2004Q4

REPORT INFORMATION
  Report Type: 
  Country: None (occurrence: None)
  Receive Date: 20041013
  Receipt Date: 20041007
  Transmission Date: 20050328
  Serious: Yes (Hospitalization)
  Sender: FDA-Public Use
  Company Number: THQ2004A00865

PATIENT
  Age: 9 Year
  Sex: Female

DRUGS (1)
  1. LUPRON (LEUPROLIDE ACETATE) (INJECTION) [Suspect]
     Indication: PRECOCIOUS PUBERTY
     Dosage: 3.75 MG (3.75 MG, 1 IN 1 M) INTRAMUSCULAR
     Route: 030
     Dates: start: 20040705, end: 20040905

REACTIONS (8)
  - CONVULSION [None]
  - HEADACHE [None]
  - HYPERTONIA [None]
  - IIIRD NERVE PARALYSIS [None]
  - IRRITABILITY [None]
  - MYALGIA [None]
  - SALIVARY HYPERSECRETION [None]
  - VOMITING [None]
